FAERS Safety Report 8342645-2 (Version None)
Quarter: 2012Q2

REPORT INFORMATION
  Report Type: 
  Country: None (occurrence: None)
  Receive Date: 20120508
  Receipt Date: 20120423
  Transmission Date: 20120825
  Serious: Yes (Other)
  Sender: FDA-Public Use
  Company Number: US-JNJCP-30000103177

PATIENT
  Age: 42 Year
  Sex: Female
  Weight: 51 kg

DRUGS (20)
  1. AMBIEN [Concomitant]
     Dosage: ONE PILL ONCE DAILY SINCE FIVE YEARS
  2. LAMOTRIGINE [Concomitant]
     Indication: BIPOLAR DISORDER
     Dosage: 75MG TWICE DAILYSINCE TWO YEARS
  3. METHIMAZOLE [Concomitant]
     Indication: HYPERTHYROIDISM
     Dosage: 5MG TWICE DAILY SINCE ONE AND HALF YEARS
  4. SEROQUEL [Concomitant]
     Indication: BIPOLAR DISORDER
     Dosage: 150MG ONCE DAILY SINCE TWO YEARS
  5. BIOTENE [Concomitant]
     Indication: VITAMIN SUPPLEMENTATION
     Dosage: 5000 MICROGRAM ONCE DAILY SINCE FOUR YEARS
  6. VITAMIN C [Concomitant]
     Indication: VITAMIN SUPPLEMENTATION
     Dosage: 500MG ONCE DAILY SINCE FOUR YEARS
  7. BACLOFEN [Concomitant]
     Dosage: 10MG ONCE DAILY SINCE THREE YEARS
  8. ACYCLOVIR [Concomitant]
     Dosage: 800MG ONCE DAILY SINCE THREE YEARS
  9. CLONAZEPAM [Concomitant]
     Indication: TREMOR
     Dosage: 2MG TWICE DAILY
  10. HYDROCODONE ELIXIR [Concomitant]
     Dosage: FOUR DOSES PER DAY SINCE SIX YEARS
  11. NTG RAPID WRINKLE REPAIR NIGHT MOIST USA NTWRNMUS [Suspect]
     Dosage: DIME SIZE AMOUNT ONCE AT NIGHT
     Route: 061
     Dates: end: 20120421
  12. VITAMIN B-12 [Concomitant]
     Indication: SUPPLEMENTATION THERAPY
     Dosage: ONCE MONTHLY SINCE FOUR YEARS.
  13. OMEPRAZOLE [Concomitant]
     Dosage: ONE PILL ONCE DAILY SINCE ONE YEAR
  14. NEUTROGENAA? RAPID WRINKLE REPAIR MOISTURIZER SPF30 [Suspect]
     Dosage: DIME SIZE AMOUNT ONCE DAILY
     Route: 061
     Dates: end: 20120421
  15. LIDOCAINE OINTMENT [Concomitant]
     Dosage: 0.5% AS NEEDED SINCE THREE YEARS
  16. MULTI-VITAMIN [Concomitant]
     Indication: VITAMIN SUPPLEMENTATION
     Dosage: ONE PILL ONCE DAILY SINCE FOUR YEARS
  17. TOPAMAX [Concomitant]
     Indication: TREMOR
     Dosage: 100MG TWICE DAILY
  18. CYCLOBENZAPRINE [Concomitant]
     Indication: HEADACHE
     Dosage: 10MG AS NEEDED SINCE FIVE YEARS
  19. IRON [Concomitant]
     Dosage: 500MG ONCE DAILY SINCE TWO YEARS
  20. FENTANYL-100 [Concomitant]
     Dosage: 75MCG PER SEVENTY TWO HOURS SINCE THREE YEARS

REACTIONS (4)
  - APPLICATION SITE SWELLING [None]
  - APPLICATION SITE PAIN [None]
  - APPLICATION SITE ERYTHEMA [None]
  - APPLICATION SITE RASH [None]
